FAERS Safety Report 15791832 (Version 1)
Quarter: 2019Q1

REPORT INFORMATION
  Report Type: Spontaneous
  Country: US (occurrence: US)
  Receive Date: 20190105
  Receipt Date: 20190105
  Transmission Date: 20190417
  Serious: No
  Sender: FDA-Public Use
  Company Number: US-JNJFOC-20181224581

PATIENT
  Sex: Female

DRUGS (8)
  1. LOVASTATIN. [Concomitant]
     Active Substance: LOVASTATIN
     Route: 065
  2. ASPIRIN. [Concomitant]
     Active Substance: ASPIRIN
     Route: 065
  3. SERTRALINE HCL [Concomitant]
     Active Substance: SERTRALINE HYDROCHLORIDE
     Route: 065
  4. SIMPONI [Suspect]
     Active Substance: GOLIMUMAB
     Indication: RHEUMATOID ARTHRITIS
     Route: 058
     Dates: start: 201805
  5. LEFLUNOMIDE. [Concomitant]
     Active Substance: LEFLUNOMIDE
     Route: 065
  6. LOSARTAN POTASSIUM. [Concomitant]
     Active Substance: LOSARTAN POTASSIUM
     Route: 065
  7. TIZANIDINE HYDROCHLORIDE. [Concomitant]
     Active Substance: TIZANIDINE HYDROCHLORIDE
     Route: 065
  8. OXYBUTYNIN CHLORIDE. [Concomitant]
     Active Substance: OXYBUTYNIN CHLORIDE
     Route: 065

REACTIONS (2)
  - Carpal tunnel syndrome [Unknown]
  - Dysstasia [Unknown]

NARRATIVE: CASE EVENT DATE: 2018
